FAERS Safety Report 12918581 (Version 2)
Quarter: 2017Q2

REPORT INFORMATION
  Report Type: Spontaneous
  Country: FR (occurrence: FR)
  Receive Date: 20161107
  Receipt Date: 20170515
  Transmission Date: 20170830
  Serious: Yes (Other)
  Sender: FDA-Public Use
  Company Number: FR-BRACCO-002430

PATIENT
  Age: 44 Year
  Sex: Male

DRUGS (20)
  1. FUROSEMIDE. [Concomitant]
     Active Substance: FUROSEMIDE
  2. CRESEMBA [Suspect]
     Active Substance: ISAVUCONAZONIUM SULFATE
     Indication: MUCORMYCOSIS
     Route: 042
     Dates: start: 20161003, end: 20161003
  3. VALACICLOVIR [Concomitant]
     Active Substance: VALACYCLOVIR HYDROCHLORIDE
  4. HYDROCORTISONE. [Concomitant]
     Active Substance: HYDROCORTISONE
  5. MULTIHANCE [Suspect]
     Active Substance: GADOBENATE DIMEGLUMINE
     Indication: NUCLEAR MAGNETIC RESONANCE IMAGING BRAIN
     Route: 042
     Dates: start: 20161003, end: 20161003
  6. PANCREATIN [Concomitant]
     Active Substance: PANCRELIPASE
  7. PANTOPRAZOLE [Concomitant]
     Active Substance: PANTOPRAZOLE
  8. BUDESONIDE. [Concomitant]
     Active Substance: BUDESONIDE
  9. RUXOLITINIB [Concomitant]
     Active Substance: RUXOLITINIB
  10. MAGNESIUM [Concomitant]
     Active Substance: MAGNESIUM
  11. AMPHOTERICIN B. [Concomitant]
     Active Substance: AMPHOTERICIN B
     Dates: start: 20160917, end: 20161003
  12. POTASSIUM CHLORIDE. [Concomitant]
     Active Substance: POTASSIUM CHLORIDE
  13. ACTISKENAN [Concomitant]
     Active Substance: MORPHINE SULFATE
  14. XANAX [Concomitant]
     Active Substance: ALPRAZOLAM
  15. CALCIDOSE [Concomitant]
     Active Substance: CALCIUM CARBONATE
  16. GLUCOSE [Concomitant]
     Active Substance: DEXTROSE
  17. URSODEOXYCHOLIC ACID [Concomitant]
     Active Substance: URSODIOL
  18. ATOVAQUONE. [Concomitant]
     Active Substance: ATOVAQUONE
  19. CALCIUM FOLINATE [Concomitant]
     Active Substance: LEUCOVORIN CALCIUM
  20. NOXAFIL [Concomitant]
     Active Substance: POSACONAZOLE
     Dates: start: 20160917

REACTIONS (5)
  - Malaise [Recovered/Resolved]
  - Paraesthesia [Recovered/Resolved]
  - Pulse absent [Recovered/Resolved]
  - Oxygen saturation decreased [Recovered/Resolved]
  - Loss of consciousness [Recovered/Resolved]

NARRATIVE: CASE EVENT DATE: 20161003
